FAERS Safety Report 7029029-4 (Version None)
Quarter: 2010Q4

REPORT INFORMATION
  Report Type: 
  Country: None (occurrence: None)
  Receive Date: 20101005
  Receipt Date: 20100930
  Transmission Date: 20110411
  Serious: Yes (Hospitalization)
  Sender: FDA-Public Use
  Company Number: A0884644A

PATIENT
  Age: 39 Year
  Sex: Female

DRUGS (2)
  1. AVANDIA [Suspect]
     Dosage: 4MG TWICE PER DAY
     Dates: start: 20041020, end: 20060401
  2. AVANDAMET [Suspect]
     Dosage: 1TAB TWICE PER DAY
     Dates: start: 20040616, end: 20090201

REACTIONS (2)
  - ACUTE CORONARY SYNDROME [None]
  - CORONARY ARTERY DISEASE [None]
